FAERS Safety Report 24036163 (Version 1)
Quarter: 2024Q3

REPORT INFORMATION
  Report Type: Report from Study
  Country: US (occurrence: US)
  Receive Date: 20240701
  Receipt Date: 20240701
  Transmission Date: 20241017
  Serious: Yes (Other)
  Sender: DR REDDYS
  Company Number: US-drreddys-CLI/USA/23/0177077

PATIENT
  Age: 27 Year
  Sex: Female

DRUGS (3)
  1. ZENATANE [Suspect]
     Active Substance: ISOTRETINOIN
     Indication: Acne
     Dosage: RMA ISSUE DATES: 16 DECEMBER 2022 11:16:06 AM
     Dates: end: 202212
  2. ZENATANE [Suspect]
     Active Substance: ISOTRETINOIN
     Dates: start: 202307, end: 20230814
  3. ZENATANE [Suspect]
     Active Substance: ISOTRETINOIN

REACTIONS (6)
  - Exposure during pregnancy [Unknown]
  - Bone pain [Recovered/Resolved]
  - Headache [Recovered/Resolved]
  - Headache [Recovered/Resolved]
  - Dry skin [Recovered/Resolved]
  - Incorrect dose administered [Unknown]

NARRATIVE: CASE EVENT DATE: 20220101
